FAERS Safety Report 8108757-3 (Version None)
Quarter: 2012Q1

REPORT INFORMATION
  Report Type: 
  Country: None (occurrence: None)
  Receive Date: 20120202
  Receipt Date: 20120126
  Transmission Date: 20120608
  Serious: Yes (Hospitalization)
  Sender: FDA-Public Use
  Company Number: GXBR2012US000591

PATIENT
  Sex: Female
  Weight: 78.1 kg

DRUGS (13)
  1. INDERAL [Concomitant]
     Dosage: UNK MG, UNK
     Dates: start: 19910101
  2. WELLBUTRIN [Concomitant]
     Dosage: UNK MG, UNK
  3. MULTIVITAMINS, OTHER COMBINATIONS [Concomitant]
     Dosage: UNK DF, UNK
  4. ANTIHISTAMINES [Concomitant]
     Dosage: UNK MG, UNK
     Route: 042
     Dates: start: 20111105
  5. CALCIUM W/VITAMIN D NOS [Concomitant]
     Dosage: UNK DF, UNK
  6. HEPARIN [Concomitant]
     Dosage: UNK DF, UNK
     Dates: start: 20111107
  7. PERPHENAZINE [Suspect]
     Indication: DEPRESSION
     Dosage: 8 MG, BID
     Route: 048
     Dates: start: 20000101
  8. KEPPRA [Concomitant]
     Dosage: UNK MG, UNK
     Dates: start: 20110501
  9. MORPHINE [Concomitant]
     Dosage: UNK MG, UNK
     Dates: start: 20090101
  10. CYCLOBENZAPRINE [Concomitant]
     Dosage: UNK MG, UNK
     Dates: start: 20050101
  11. LAMOTRIGINE [Concomitant]
     Dosage: UNK MG, UNK
     Dates: start: 20110611
  12. PROZAC [Suspect]
     Indication: DEPRESSION
     Dosage: 60 MG, QD
     Route: 048
     Dates: start: 20000101
  13. HYDROMORPHONE HCL [Concomitant]
     Dosage: UNK MG, UNK
     Dates: start: 20111108, end: 20111109

REACTIONS (3)
  - RENAL FAILURE [None]
  - HYPONATRAEMIA [None]
  - ANAPHYLACTOID REACTION [None]
